FAERS Safety Report 12641288 (Version 1)
Quarter: 2016Q3

REPORT INFORMATION
  Report Type: Spontaneous
  Country: US (occurrence: US)
  Receive Date: 20160810
  Receipt Date: 20160810
  Transmission Date: 20161109
  Serious: Yes (Hospitalization)
  Sender: FDA-Public Use
  Company Number: US-PFIZER INC-2016373233

PATIENT
  Sex: Male
  Weight: 74.83 kg

DRUGS (1)
  1. INLYTA [Suspect]
     Active Substance: AXITINIB
     Indication: NEOPLASM MALIGNANT
     Dosage: UNK
     Dates: start: 20160508, end: 20160731

REACTIONS (21)
  - Tremor [Unknown]
  - Contusion [Unknown]
  - Asthenia [Unknown]
  - Blood pressure increased [Unknown]
  - Fatigue [Unknown]
  - Dysphonia [Unknown]
  - Dehydration [Unknown]
  - Balance disorder [Unknown]
  - Diarrhoea [Unknown]
  - Vomiting [Unknown]
  - Visual impairment [Unknown]
  - Decreased appetite [Unknown]
  - Blood thyroid stimulating hormone increased [Not Recovered/Not Resolved]
  - Condition aggravated [Not Recovered/Not Resolved]
  - Weight decreased [Unknown]
  - Thyroid disorder [Unknown]
  - Flatulence [Unknown]
  - Confusional state [Unknown]
  - Abdominal discomfort [Unknown]
  - Nausea [Unknown]
  - Speech disorder [Unknown]
